FAERS Safety Report 6067300-3 (Version None)
Quarter: 2009Q1

REPORT INFORMATION
  Report Type: 
  Country: None (occurrence: None)
  Receive Date: 20090203
  Receipt Date: 20090123
  Transmission Date: 20090719
  Serious: Yes (Other)
  Sender: FDA-Public Use
  Company Number: 2009AP000347

PATIENT
  Age: 55 Year
  Sex: Male
  Weight: 95.2554 kg

DRUGS (5)
  1. TRAMADOL HYDROCHLORIDE [Suspect]
     Dosage: 50 MG; TID; PO
     Route: 048
     Dates: end: 20081201
  2. SIMVASTATIN [Concomitant]
  3. VIICODIN [Concomitant]
  4. ROPINIROLE [Concomitant]
  5. HYDROCHLORIDE [Concomitant]

REACTIONS (12)
  - BLEPHAROSPASM [None]
  - BLISTER [None]
  - DIZZINESS [None]
  - DRUG WITHDRAWAL SYNDROME [None]
  - DYSKINESIA [None]
  - EYE MOVEMENT DISORDER [None]
  - FATIGUE [None]
  - INSOMNIA [None]
  - LETHARGY [None]
  - RESTLESSNESS [None]
  - TINNITUS [None]
  - VISUAL IMPAIRMENT [None]
